FAERS Safety Report 13105113 (Version 1)
Quarter: 2017Q1

REPORT INFORMATION
  Report Type: Spontaneous
  Country: US (occurrence: US)
  Receive Date: 20170111
  Receipt Date: 20170111
  Transmission Date: 20170428
  Serious: Yes (Other)
  Sender: FDA-Public Use
  Company Number: US-SAGENTPRD-2016-US-000132

PATIENT
  Age: 83 Year
  Sex: Male
  Weight: 48.9 kg

DRUGS (10)
  1. NO DRUG NAME [Concomitant]
     Dosage: 20 MEQ
  2. NO DRUG NAME [Concomitant]
     Dosage: 20 MG
  3. NO DRUG NAME [Concomitant]
     Dosage: 3 MG
  4. NO DRUG NAME [Concomitant]
     Dosage: 1 MG
  5. NO DRUG NAME [Concomitant]
     Dosage: 50 MCG
  6. HEPARIN SODIUM INJECTION, MDV, 10 ML, 1000 UNIT/ML [Suspect]
     Active Substance: HEPARIN SODIUM
     Dosage: 5000 UNIT BOLUS AND 1400 U/HR
  7. NO DRUG NAME [Concomitant]
  8. NO DRUG NAME [Concomitant]
     Dosage: 40 MG
  9. NO DRUG NAME [Concomitant]
     Dosage: 80/4.5
  10. NO DRUG NAME [Concomitant]
     Dosage: 325 MG

REACTIONS (1)
  - Drug ineffective [Unknown]

NARRATIVE: CASE EVENT DATE: 20161227
